FAERS Safety Report 4270211-7 (Version None)
Quarter: 2004Q1

REPORT INFORMATION
  Report Type: 
  Country: None (occurrence: None)
  Receive Date: 20040112
  Receipt Date: 20031229
  Transmission Date: 20041129
  Serious: Yes (Hospitalization, Other)
  Sender: FDA-Public Use
  Company Number: A206121

PATIENT
  Age: 74 Year
  Sex: Female
  Weight: 42.1845 kg

DRUGS (6)
  1. DOFETILIDE (DOFETILIDE) [Suspect]
     Indication: ATRIAL FIBRILLATION
     Dosage: 250 MCG (BID), ORAL
     Route: 048
     Dates: start: 20011218
  2. SPICY FOODS [Suspect]
     Indication: ILL-DEFINED DISORDER
     Dosage: ORAL
  3. VITAMIN B6 [Concomitant]
  4. MOEXIPRIL HYDROCHLORIDE (MOEXIPRIL HYDROCHLORIDE) [Concomitant]
  5. ACETYLSALICYLIC ACID SRT [Concomitant]
  6. HYOSCYAMINE SULFATE AND PHENOBARBITAL [Concomitant]

REACTIONS (9)
  - ATRIAL FIBRILLATION [None]
  - BONE DENSITY DECREASED [None]
  - BRONCHITIS [None]
  - CRYPTOGENIC ORGANIZING PNEUMONIA [None]
  - DISEASE RECURRENCE [None]
  - DYSPNOEA [None]
  - EATING DISORDER [None]
  - FOOD INTERACTION [None]
  - WEIGHT INCREASED [None]
